FAERS Safety Report 13245260 (Version 3)
Quarter: 2019Q2

REPORT INFORMATION
  Report Type: Spontaneous
  Country: US (occurrence: US)
  Receive Date: 20170217
  Receipt Date: 20190509
  Transmission Date: 20190711
  Serious: Yes (Hospitalization)
  Sender: FDA-Public Use
  Company Number: US-ACTELION-A-US2017-149965

PATIENT
  Age: 11 Year
  Sex: Female

DRUGS (14)
  1. VITAMIN B12 [Concomitant]
     Active Substance: CYANOCOBALAMIN
     Dosage: 2500 MCG, QD
     Route: 048
     Dates: start: 20131104
  2. MANNITOL. [Concomitant]
     Active Substance: MANNITOL
     Dosage: 310 MG, UNK
     Route: 048
     Dates: start: 20170125
  3. OMEGA 3 [Concomitant]
     Active Substance: OMEGA-3 FATTY ACIDS
     Dosage: 1 EACH, AS DIRECTED
     Route: 048
     Dates: start: 20131012
  4. UBIQUINOL [Concomitant]
     Active Substance: UBIQUINOL
     Dosage: 100 MG, QD
     Route: 048
     Dates: start: 20131104
  5. OMEGA 3 [Concomitant]
     Active Substance: OMEGA-3 FATTY ACIDS
     Dosage: 1 DOSE BY MOUTH
     Dates: start: 20170515
  6. DEXTROMETHORPHAN HYDROBROMIDE W/QUINIDINE SUL [Concomitant]
     Active Substance: DEXTROMETHORPHAN HYDROBROMIDE
     Dosage: 20 MG,/10 MG BID
     Route: 048
     Dates: start: 20150415
  7. FOLIC ACID. [Concomitant]
     Active Substance: FOLIC ACID
     Dosage: 1 TABLET, QD
     Route: 048
     Dates: start: 20131104
  8. CEFDINIR. [Concomitant]
     Active Substance: CEFDINIR
     Dosage: 125 MG/5 ML, AS DIRECTED
     Route: 048
     Dates: start: 20131012
  9. MULTIVITAMIN [Concomitant]
     Active Substance: VITAMINS
     Dosage: UNK
     Dates: start: 20150415
  10. DIAMOX SEQUELS [Concomitant]
     Active Substance: ACETAZOLAMIDE
     Dosage: 1 DOSE BY MOUTH BID
     Route: 048
     Dates: start: 20170403
  11. ZAVESCA [Suspect]
     Active Substance: MIGLUSTAT
     Indication: GAUCHER^S DISEASE
     Dosage: 75 MG, BID
     Route: 048
     Dates: start: 20121016
  12. ZAVESCA [Suspect]
     Active Substance: MIGLUSTAT
     Dosage: 75 MG, BID
     Route: 048
     Dates: start: 201612
  13. IBUPROFEN. [Concomitant]
     Active Substance: IBUPROFEN
     Dosage: 400 MG, UNK
     Dates: start: 20131104
  14. NUEDEXTA [Concomitant]
     Active Substance: DEXTROMETHORPHAN HYDROBROMIDE\QUINIDINE SULFATE
     Dosage: UNK
     Dates: start: 20150415

REACTIONS (2)
  - Pneumonia [Unknown]
  - Influenza [Unknown]

NARRATIVE: CASE EVENT DATE: 20170213
